FAERS Safety Report 7558777-2 (Version None)
Quarter: 2011Q2

REPORT INFORMATION
  Report Type: 
  Country: None (occurrence: None)
  Receive Date: 20110621
  Receipt Date: 20110615
  Transmission Date: 20111010
  Serious: No
  Sender: FDA-Public Use
  Company Number: US-BIOGENIDEC-2011BI022138

PATIENT
  Age: 46 Year
  Sex: Female

DRUGS (1)
  1. TYSABRI [Suspect]
     Indication: MULTIPLE SCLEROSIS
     Route: 042
     Dates: start: 20110223, end: 20110427

REACTIONS (6)
  - URINARY TRACT INFECTION [None]
  - PYREXIA [None]
  - VAGINAL INFECTION [None]
  - PNEUMONIA [None]
  - SPINAL COLUMN INJURY [None]
  - DEPRESSION [None]
